FAERS Safety Report 5769989-2 (Version None)
Quarter: 2008Q2

REPORT INFORMATION
  Report Type: 
  Country: None (occurrence: None)
  Receive Date: 20080613
  Receipt Date: 20080416
  Transmission Date: 20081010
  Serious: No
  Sender: FDA-Public Use
  Company Number: US-ABBOTT-08P-163-0447745-00

PATIENT
  Sex: Female
  Weight: 62.652 kg

DRUGS (7)
  1. HUMIRA [Suspect]
     Indication: CROHN'S DISEASE
     Route: 058
     Dates: start: 20080407
  2. HUMIRA [Suspect]
     Route: 058
     Dates: start: 20080408
  3. CYANOCOBALAMIN-TANNIN COMPLEX [Concomitant]
     Indication: CROHN'S DISEASE
     Route: 030
     Dates: start: 19910101
  4. LISINOPRIL [Concomitant]
     Indication: HYPERTENSION
     Route: 048
     Dates: start: 19950101
  5. CLOPIDOGREL [Concomitant]
     Indication: CORONARY ARTERIAL STENT INSERTION
     Route: 048
     Dates: start: 20020101
  6. METOPROLOL TARTRATE [Concomitant]
     Indication: HYPERTENSION
     Route: 048
     Dates: start: 19950101
  7. ISOSORBIDE MONONITRATE [Concomitant]
     Indication: DRUG USE FOR UNKNOWN INDICATION
     Route: 048
     Dates: start: 19950101

REACTIONS (4)
  - GLOSSODYNIA [None]
  - LIP DRY [None]
  - LIP SWELLING [None]
  - ORAL DISCOMFORT [None]
